FAERS Safety Report 8780609 (Version 2)
Quarter: 2012Q4

REPORT INFORMATION
  Report Type: 
  Country: BR (occurrence: BR)
  Receive Date: 20120913
  Receipt Date: 20121022
  Transmission Date: 20130627
  Serious: Yes (Other)
  Sender: FDA-Public Use
  Company Number: BR-ELI_LILLY_AND_COMPANY-BR201209000756

PATIENT
  Sex: Male
  Weight: 113 kg

DRUGS (6)
  1. HUMULIN NPH [Suspect]
     Indication: TYPE 1 DIABETES MELLITUS
     Dosage: UNK, bid
     Route: 058
     Dates: start: 201206
  2. HUMULIN NPH [Suspect]
     Dosage: UNK, unknown
     Route: 058
  3. HUMULIN NPH [Suspect]
     Dosage: UNK, unknown
     Route: 058
  4. PRESSAT [Concomitant]
     Indication: BLOOD PRESSURE
     Dosage: UNK, unknown
     Route: 065
  5. LOSARTAN [Concomitant]
     Indication: BLOOD PRESSURE
     Dosage: UNK, unknown
     Route: 065
  6. GLIMEPIRIDE W/METFORMIN [Concomitant]
     Indication: DIABETES MELLITUS
     Dosage: UNK, unknown
     Route: 065

REACTIONS (2)
  - Blindness [Unknown]
  - Cataract [Not Recovered/Not Resolved]
